FAERS Safety Report 11398968 (Version 1)
Quarter: 2015Q3

REPORT INFORMATION
  Report Type: Spontaneous
  Country: US (occurrence: None)
  Receive Date: 20150818
  Receipt Date: 20150818
  Transmission Date: 20151125
  Serious: Yes (Death)
  Sender: FDA-Public Use
  Company Number: None

PATIENT
  Age: 86 Day
  Sex: Male

DRUGS (1)
  1. ONDANSETRON [Suspect]
     Active Substance: ONDANSETRON
     Indication: GASTROENTERITIS
     Route: 048
     Dates: start: 20120108, end: 20120109

REACTIONS (14)
  - Ventricular fibrillation [None]
  - Presyncope [None]
  - Skin discolouration [None]
  - Vomiting [None]
  - Hyporesponsive to stimuli [None]
  - Blood potassium increased [None]
  - Pulmonary oedema [None]
  - Blood pressure decreased [None]
  - Laboratory test interference [None]
  - Supraventricular tachycardia [None]
  - Blood glucose decreased [None]
  - Chest X-ray abnormal [None]
  - Haemolysis [None]
  - Atelectasis [None]

NARRATIVE: CASE EVENT DATE: 20120108
